FAERS Safety Report 16833314 (Version 1)
Quarter: 2019Q4

REPORT INFORMATION
  Report Type: Spontaneous
  Country: US (occurrence: US)
  Receive Date: 20190920
  Receipt Date: 20190920
  Transmission Date: 20200122
  Serious: Yes (Other)
  Sender: FDA-Public Use
  Company Number: None

PATIENT
  Age: 65 Year
  Sex: Female
  Weight: 103.5 kg

DRUGS (5)
  1. VITAMIN E [Concomitant]
     Active Substance: .ALPHA.-TOCOPHEROL
  2. ACCOLATE 20MG [Concomitant]
  3. VITAMIN D3 [Concomitant]
     Active Substance: CHOLECALCIFEROL
  4. BUSPAR 30 MG [Concomitant]
  5. XIIDRA [Suspect]
     Active Substance: LIFITEGRAST
     Indication: CORNEAL EROSION
     Dosage: ?          QUANTITY:1 DROP(S);OTHER ROUTE:EYE DROPS?

REACTIONS (8)
  - Muscle spasms [None]
  - Heart rate increased [None]
  - Blepharitis [None]
  - Insomnia [None]
  - Dysgeusia [None]
  - Conjunctivitis [None]
  - Sinusitis [None]
  - Migraine [None]

NARRATIVE: CASE EVENT DATE: 20190917
